FAERS Safety Report 4678026-2 (Version None)
Quarter: 2005Q2

REPORT INFORMATION
  Report Type: 
  Country: None (occurrence: None)
  Receive Date: 20050531
  Receipt Date: 20050510
  Transmission Date: 20051028
  Serious: Yes (Life-Threatening, Hospitalization)
  Sender: FDA-Public Use
  Company Number: DE-MERCK-0505DEU00066

PATIENT
  Age: 81 Year
  Sex: Female
  Weight: 66 kg

DRUGS (4)
  1. FOSAMAX [Suspect]
     Indication: OSTEOPOROSIS
     Route: 048
     Dates: start: 20021101, end: 20050323
  2. LEVOTHYROXINE SODIUM [Concomitant]
     Route: 048
  3. ENALAPRIL MALEATE AND HYDROCHLOROTHIAZIDE [Concomitant]
     Route: 048
  4. CALCIUM GLUCONATE AND CALCIUM PHOSPHATE TRIBASIC AND CHOLECALCIFEROL [Concomitant]
     Route: 048

REACTIONS (4)
  - GASTROINTESTINAL ULCER HAEMORRHAGE [None]
  - HIATUS HERNIA [None]
  - MALLORY-WEISS SYNDROME [None]
  - REFLUX OESOPHAGITIS [None]
